FAERS Safety Report 25051848 (Version 1)
Quarter: 2025Q1

REPORT INFORMATION
  Report Type: Spontaneous
  Country: US (occurrence: None)
  Receive Date: 20250307
  Receipt Date: 20250307
  Transmission Date: 20250409
  Serious: Yes (Hospitalization)
  Sender: FDA-CTU
  Company Number: None

PATIENT
  Age: 65 Year
  Sex: Male

DRUGS (15)
  1. MYCOPHENOLIC ACID [Suspect]
     Active Substance: MYCOPHENOLIC ACID
     Indication: Heart transplant
     Dosage: 540 MG TWICE A DAY ORAL
     Route: 048
     Dates: start: 20240814
  2. TACROLIMUS [Suspect]
     Active Substance: TACROLIMUS
     Indication: Heart transplant
     Dosage: 4 MG TWICE A DAY ORAL
     Route: 048
     Dates: start: 20240814
  3. FUROSEMIDE [Concomitant]
     Active Substance: FUROSEMIDE
     Dates: start: 20240814
  4. OMEPRAZOLE [Concomitant]
     Active Substance: OMEPRAZOLE
     Dates: start: 20240814
  5. PRAVASTATIN 40MG TABLETS [Concomitant]
     Dates: start: 20240814
  6. PREDNISONE [Concomitant]
     Active Substance: PREDNISONE
     Dates: start: 20240814
  7. ACETAMINOPHEN 500MG TABLETS [Concomitant]
  8. ASPIRIN 81MG EC LOW DOSE TABLETS [Concomitant]
     Dates: start: 20240814, end: 20240814
  9. VITAMIN D3 2,000 UNIT CAPSULE [Concomitant]
     Dates: start: 20241022
  10. DAILY-VITE TABLET [Concomitant]
     Dates: start: 20240814
  11. NYSTATIN ORAL SUSPENSION 100,000 UNIT/ML [Concomitant]
     Dates: start: 20240814
  12. VITAMINE E 400 IU CAPSULE [Concomitant]
     Dates: start: 20240814
  13. VITAMIN C 500 MG TABLET [Concomitant]
     Dates: start: 20241022
  14. VALGANCICLOVIR 450 MG TABLET [Concomitant]
     Dates: start: 20240814
  15. CALCIUM TRITRATE WITH D3 TABLET [Concomitant]
     Dates: start: 20240814

REACTIONS (1)
  - Blister infected [None]

NARRATIVE: CASE EVENT DATE: 20250227
